FAERS Safety Report 21344164 (Version 1)
Quarter: 2022Q3

REPORT INFORMATION
  Report Type: Spontaneous
  Country: US (occurrence: US)
  Receive Date: 20220916
  Receipt Date: 20220916
  Transmission Date: 20221026
  Serious: No
  Sender: FDA-Public Use
  Company Number: US-SK LIFE SCIENCE, INC-SKPVG-2022-000552

PATIENT

DRUGS (14)
  1. XCOPRI [Suspect]
     Active Substance: CENOBAMATE
     Indication: Focal dyscognitive seizures
     Dosage: 25 MILLIGRAM, QD
     Route: 048
     Dates: start: 20220617, end: 20220715
  2. XCOPRI [Suspect]
     Active Substance: CENOBAMATE
     Indication: Seizure
  3. REQUIP [Concomitant]
     Active Substance: ROPINIROLE HYDROCHLORIDE
     Indication: Product used for unknown indication
     Dosage: 5 MILLIGRAM, AT BEDTIME
     Route: 065
  4. HYDROXYCHLOROQUINE [Concomitant]
     Active Substance: HYDROXYCHLOROQUINE
     Indication: Product used for unknown indication
     Dosage: 200 MILLIGRAM, 2, AT BEDTIME
     Route: 065
  5. URECHOLINE [Concomitant]
     Active Substance: BETHANECHOL CHLORIDE
     Indication: Product used for unknown indication
     Dosage: 25 MILLIGRAM, TID
     Route: 065
  6. PANTOPRAZOLE [Concomitant]
     Active Substance: PANTOPRAZOLE
     Indication: Product used for unknown indication
     Dosage: 40 MILLIGRAM, BID
     Route: 065
  7. SIMVASTATIN [Concomitant]
     Active Substance: SIMVASTATIN
     Indication: Product used for unknown indication
     Dosage: 40 MILLIGRAM, AT BEDTIME
     Route: 065
  8. FOLIC ACID [Concomitant]
     Active Substance: FOLIC ACID
     Indication: Product used for unknown indication
     Dosage: 1 MILLIGRAM, QD
     Route: 065
  9. DULOXETINE [Concomitant]
     Active Substance: DULOXETINE
     Indication: Product used for unknown indication
     Dosage: 30 MILLIGRAM AT BEDTIME
     Route: 065
  10. FAMOTIDINE [Concomitant]
     Active Substance: FAMOTIDINE
     Indication: Product used for unknown indication
     Dosage: 20 MILLIGRAM, BID
     Route: 065
  11. CALCIUM D                          /00944201/ [Concomitant]
     Indication: Product used for unknown indication
     Dosage: UNK, QD
     Route: 065
  12. B12                                /00056201/ [Concomitant]
     Indication: Product used for unknown indication
     Dosage: 1000 MICROGRAM, QD
     Route: 065
  13. FLOMAX                             /01280302/ [Concomitant]
     Indication: Product used for unknown indication
     Dosage: 0.4 MILLIGRAM, IN THE MORNING
     Route: 065
  14. CLARITIN                           /00917501/ [Concomitant]
     Indication: Product used for unknown indication
     Dosage: 10 MILLIGRAM, ONCE DAILY
     Route: 065

REACTIONS (1)
  - Product use issue [Not Recovered/Not Resolved]
